FAERS Safety Report 7359835-8 (Version None)
Quarter: 2011Q1

REPORT INFORMATION
  Report Type: 
  Country: None (occurrence: None)
  Receive Date: 20110317
  Receipt Date: 20110220
  Transmission Date: 20110831
  Serious: No
  Sender: FDA-Public Use
  Company Number: US-B.I. PHARMACEUTICALS,INC./RIDGEFIELD-2011-BP-06407BP

PATIENT
  Age: 79 Year
  Sex: Female

DRUGS (8)
  1. ASPIRIN [Concomitant]
     Indication: CEREBROVASCULAR ACCIDENT PROPHYLAXIS
     Dosage: 81 MG
  2. AMBIEN [Concomitant]
     Indication: SLEEP DISORDER
  3. PRADAXA [Suspect]
     Indication: ATRIAL FIBRILLATION
     Dosage: 300 MG
     Route: 048
     Dates: start: 20110128
  4. LIPITOR [Concomitant]
     Indication: BLOOD CHOLESTEROL INCREASED
  5. AMIODARONE [Concomitant]
     Indication: CEREBROVASCULAR ACCIDENT PROPHYLAXIS
  6. LASIX [Concomitant]
  7. LAMISIL [Concomitant]
  8. POTASSIUM [Concomitant]
     Indication: SUPPLEMENTATION THERAPY

REACTIONS (2)
  - GASTROOESOPHAGEAL REFLUX DISEASE [None]
  - CARDIAC DISORDER [None]
